FAERS Safety Report 7331339-8 (Version None)
Quarter: 2011Q1

REPORT INFORMATION
  Report Type: 
  Country: None (occurrence: None)
  Receive Date: 20110304
  Receipt Date: 20100908
  Transmission Date: 20110831
  Serious: Yes (Hospitalization)
  Sender: FDA-Public Use
  Company Number: US-BAYER-201018539NA

PATIENT
  Sex: Female
  Weight: 65.624 kg

DRUGS (12)
  1. NIACIN [Concomitant]
  2. AMOXICILLIN [Concomitant]
  3. NAPROSYN [Concomitant]
  4. YAZ [Suspect]
     Indication: PROPHYLAXIS
     Dosage: UNK UNK, UNK
     Route: 048
     Dates: start: 20080519, end: 20091116
  5. YASMIN [Suspect]
     Indication: ACNE
  6. MAALOX [Concomitant]
  7. HYDROCODONE BITARTRATE [Concomitant]
  8. OCELLA [Suspect]
     Indication: PROPHYLAXIS
  9. YAZ [Suspect]
     Indication: OVARIAN CYST
     Dosage: UNK
  10. YAZ [Suspect]
     Indication: MENSTRUAL CYCLE MANAGEMENT
  11. YASMIN [Suspect]
     Indication: PROPHYLAXIS
  12. VERAMYST [Concomitant]

REACTIONS (6)
  - PAIN [None]
  - EMOTIONAL DISTRESS [None]
  - CHOLELITHIASIS [None]
  - CHOLECYSTITIS CHRONIC [None]
  - MENTAL DISORDER [None]
  - PANCREATITIS ACUTE [None]
